FAERS Safety Report 5153814-7 (Version None)
Quarter: 2006Q4

REPORT INFORMATION
  Report Type: 
  Country: None (occurrence: None)
  Receive Date: 20061120
  Receipt Date: 20061106
  Transmission Date: 20070319
  Serious: Yes (Hospitalization)
  Sender: FDA-Public Use
  Company Number: US-JNJFOC-20061101723

PATIENT
  Sex: Male
  Weight: 77.11 kg

DRUGS (10)
  1. RISPERDAL CONSTA [Suspect]
     Indication: SCHIZOPHRENIA, PARANOID TYPE
     Route: 030
  2. ZYPREXA [Concomitant]
  3. LASIX [Concomitant]
  4. VITAMIN B COMPLEX CAP [Concomitant]
  5. FLOMAX [Concomitant]
     Indication: PROSTATE EXAMINATION ABNORMAL
  6. NORVASC [Concomitant]
     Indication: HYPERTENSION
  7. CARDURA [Concomitant]
     Indication: HYPERTENSION
  8. ATENELOL [Concomitant]
     Indication: HYPERTENSION
  9. NAPROSYN [Concomitant]
     Indication: PAIN MANAGEMENT
  10. HYDROCODONE [Concomitant]
     Indication: PAIN MANAGEMENT

REACTIONS (4)
  - ASTHENIA [None]
  - DIARRHOEA [None]
  - RENAL FAILURE [None]
  - URINARY RETENTION [None]
